FAERS Safety Report 23683309 (Version 1)
Quarter: 2024Q1

REPORT INFORMATION
  Report Type: Spontaneous
  Country: CZ (occurrence: CZ)
  Receive Date: 20240328
  Receipt Date: 20240328
  Transmission Date: 20240410
  Serious: Yes (Hospitalization, Other)
  Sender: FDA-Public Use
  Company Number: CZ-002147023-NVSC2021CZ004535

PATIENT
  Age: 45 Year
  Sex: Male

DRUGS (17)
  1. CARBAMAZEPINE [Suspect]
     Active Substance: CARBAMAZEPINE
     Indication: Psychogenic seizure
     Dosage: UNK
     Route: 065
  2. CARBAMAZEPINE [Suspect]
     Active Substance: CARBAMAZEPINE
     Indication: Epilepsy
  3. ESLICARBAZEPINE [Suspect]
     Active Substance: ESLICARBAZEPINE
     Indication: Psychogenic seizure
     Dosage: UNK
     Route: 065
  4. ESLICARBAZEPINE [Suspect]
     Active Substance: ESLICARBAZEPINE
     Indication: Epilepsy
  5. LEVETIRACETAM [Suspect]
     Active Substance: LEVETIRACETAM
     Indication: Psychogenic seizure
     Dosage: UNK
     Route: 065
  6. LEVETIRACETAM [Suspect]
     Active Substance: LEVETIRACETAM
     Indication: Depression
  7. LEVETIRACETAM [Suspect]
     Active Substance: LEVETIRACETAM
     Indication: Epilepsy
  8. VALPROATE [Suspect]
     Active Substance: VALPROIC ACID
     Indication: Psychogenic seizure
     Dosage: UNK
     Route: 065
  9. VALPROATE [Suspect]
     Active Substance: VALPROIC ACID
     Indication: Depression
  10. VALPROATE [Suspect]
     Active Substance: VALPROIC ACID
     Indication: Epilepsy
  11. VALPROATE [Suspect]
     Active Substance: VALPROIC ACID
     Indication: Seizure
  12. BRIVARACETAM [Concomitant]
     Active Substance: BRIVARACETAM
     Indication: Psychogenic seizure
     Dosage: 100 MG, QD
     Route: 065
  13. BRIVARACETAM [Concomitant]
     Active Substance: BRIVARACETAM
     Indication: Epilepsy
     Dosage: 50 MG, QD, 25 MILLIGRAM, 2X/DAY (BID)
     Route: 065
  14. LAMOTRIGINE [Concomitant]
     Active Substance: LAMOTRIGINE
     Indication: Seizure
     Dosage: 400 MG, QD
     Route: 065
  15. LAMOTRIGINE [Concomitant]
     Active Substance: LAMOTRIGINE
     Indication: Drug therapy
  16. TOPIRAMATE [Concomitant]
     Active Substance: TOPIRAMATE
     Indication: Epilepsy
     Dosage: 200 MG, QD
     Route: 065
  17. TOPIRAMATE [Concomitant]
     Active Substance: TOPIRAMATE
     Indication: Psychogenic seizure
     Dosage: UNK, QD
     Route: 065

REACTIONS (7)
  - Erectile dysfunction [Unknown]
  - Weight increased [Unknown]
  - Psychogenic seizure [Unknown]
  - Condition aggravated [Unknown]
  - Drug ineffective [Unknown]
  - Drug ineffective for unapproved indication [Unknown]
  - Product use in unapproved indication [Unknown]
